FAERS Safety Report 4290388-7 (Version None)
Quarter: 2004Q1

REPORT INFORMATION
  Report Type: 
  Country: None (occurrence: None)
  Receive Date: 20040206
  Receipt Date: 20040206
  Transmission Date: 20041129
  Serious: Yes (Life-Threatening)
  Sender: FDA-Public Use
  Company Number: None

PATIENT
  Age: 49 Year
  Sex: Female
  Weight: 95.2554 kg

DRUGS (1)
  1. MACROBID 100 MG PROCTOR AND GAMBLE [Suspect]
     Indication: URINARY TRACT INFECTION
     Dosage: 1 CAPSULE 2X DAILY ORAL
     Route: 048
     Dates: start: 20040128, end: 20040206

REACTIONS (12)
  - ANOREXIA [None]
  - CHILLS [None]
  - COUGH [None]
  - DYSPNOEA [None]
  - FATIGUE [None]
  - HEADACHE [None]
  - HYPERSOMNIA [None]
  - INFLUENZA LIKE ILLNESS [None]
  - NAUSEA [None]
  - PAIN [None]
  - PYREXIA [None]
  - URTICARIA [None]
